FAERS Safety Report 7353182-6 (Version None)
Quarter: 2011Q1

REPORT INFORMATION
  Report Type: 
  Country: None (occurrence: None)
  Receive Date: 20110310
  Receipt Date: 20110310
  Transmission Date: 20110831
  Serious: No
  Sender: FDA-Public Use
  Company Number: None

PATIENT
  Sex: Female
  Weight: 97 kg

DRUGS (2)
  1. FLEBOGAMMA [Suspect]
     Indication: CHRONIC LYMPHOCYTIC LEUKAEMIA
     Dosage: 30,000MG IV
     Route: 042
  2. FLEBOGAMMA [Suspect]

REACTIONS (5)
  - DYSPNOEA [None]
  - CHILLS [None]
  - INFUSION RELATED REACTION [None]
  - NAUSEA [None]
  - DIZZINESS [None]
